FAERS Safety Report 9960569 (Version 1)
Quarter: 2014Q1

REPORT INFORMATION
  Report Type: Report from Study
  Country: US (occurrence: US)
  Receive Date: 20140305
  Receipt Date: 20140305
  Transmission Date: 20141002
  Serious: No
  Sender: FDA-Public Use
  Company Number: US-ABBVIE-13P-163-1107521-00

PATIENT
  Sex: Female
  Weight: 81.72 kg

DRUGS (2)
  1. HUMIRA [Suspect]
     Indication: PSORIATIC ARTHROPATHY
     Route: 058
     Dates: start: 200806, end: 201106
  2. HYDROCODONE/ACETAMINOPHEN [Concomitant]
     Indication: FIBROMYALGIA
     Dosage: 1-2 TABS 2-3 TIMES A WEEK AS NEEDED

REACTIONS (1)
  - Type 2 diabetes mellitus [Not Recovered/Not Resolved]
